FAERS Safety Report 6611143-6 (Version None)
Quarter: 2010Q1

REPORT INFORMATION
  Report Type: 
  Country: None (occurrence: None)
  Receive Date: 20100302
  Receipt Date: 20100302
  Transmission Date: 20100710
  Serious: Yes (Hospitalization)
  Sender: FDA-Public Use
  Company Number: None

PATIENT
  Age: 27 Year
  Sex: Female
  Weight: 56.8 kg

DRUGS (6)
  1. TRAMADOL HCL [Suspect]
     Indication: PAIN
     Dosage: 50MG Q6H PO  (CHRONIC - POSSIBLE RECENT INCREASE)
     Route: 048
  2. LEXAPRO [Concomitant]
  3. AMITRIPTYLINE HCL [Concomitant]
  4. ADDERALL 30 [Concomitant]
  5. IBUPROFEN [Concomitant]
  6. OXYCODONE HCL AND ACETAMINOPHEN [Concomitant]

REACTIONS (4)
  - CONVULSION [None]
  - DRUG WITHDRAWAL SYNDROME [None]
  - OVERDOSE [None]
  - URINARY TRACT INFECTION [None]
